FAERS Safety Report 8061348-5 (Version None)
Quarter: 2012Q1

REPORT INFORMATION
  Report Type: 
  Country: None (occurrence: None)
  Receive Date: 20120120
  Receipt Date: 20111212
  Transmission Date: 20120608
  Serious: No
  Sender: FDA-Public Use
  Company Number: US-ALLERGAN-1112778US

PATIENT
  Sex: Female

DRUGS (3)
  1. RESTASIS [Suspect]
     Indication: EYE DISCHARGE
  2. RESTASIS [Suspect]
     Indication: DRY EYE
     Dosage: 2 GTT, BID
     Route: 047
     Dates: end: 20110926
  3. RESTASIS [Suspect]
     Indication: EYE IRRITATION

REACTIONS (3)
  - BLEPHARITIS [None]
  - CONJUNCTIVITIS [None]
  - VISION BLURRED [None]
